FAERS Safety Report 22837036 (Version 2)
Quarter: 2023Q4

REPORT INFORMATION
  Report Type: Spontaneous
  Country: GB (occurrence: GB)
  Receive Date: 20230818
  Receipt Date: 20231020
  Transmission Date: 20240109
  Serious: Yes (Death, Other)
  Sender: FDA-Public Use
  Company Number: None

PATIENT
  Age: 87 Year
  Sex: Male

DRUGS (11)
  1. FLUOROURACIL [Suspect]
     Active Substance: FLUOROURACIL
     Indication: Colorectal cancer metastatic
  2. IRINOTECAN [Suspect]
     Active Substance: IRINOTECAN
     Indication: Colorectal cancer metastatic
  3. LEUCOVORIN CALCIUM [Suspect]
     Active Substance: LEUCOVORIN CALCIUM
     Indication: Colorectal cancer metastatic
  4. CETUXIMAB [Suspect]
     Active Substance: CETUXIMAB
     Indication: Colorectal cancer metastatic
     Route: 065
  5. PIPERACILLIN SODIUM\TAZOBACTAM SODIUM [Suspect]
     Active Substance: PIPERACILLIN SODIUM\TAZOBACTAM SODIUM
     Dosage: 8AM, 8PM
  6. CETUXIMAB [Concomitant]
     Active Substance: CETUXIMAB
     Dosage: UNK
  7. FLUOROURACIL [Concomitant]
     Active Substance: FLUOROURACIL
     Dosage: UNK
  8. IRINOTECAN HYDROCHLORIDE [Concomitant]
     Active Substance: IRINOTECAN HYDROCHLORIDE
     Dosage: UNK
  9. LEUCOVORIN CALCIUM [Concomitant]
     Active Substance: LEUCOVORIN CALCIUM
  10. PIPERACILLIN SODIUM\TAZOBACTAM SODIUM [Suspect]
     Active Substance: PIPERACILLIN SODIUM\TAZOBACTAM SODIUM
     Dosage: 8AM, 2PM, 10PM
  11. FLUOROURACIL [Suspect]
     Active Substance: FLUOROURACIL
     Indication: Product used for unknown indication

REACTIONS (16)
  - Colitis ischaemic [Fatal]
  - Pneumatosis intestinalis [Fatal]
  - Portal venous gas [Fatal]
  - Hepatic venous pressure gradient abnormal [Fatal]
  - Neutrophil count decreased [Unknown]
  - Acute kidney injury [Fatal]
  - Sepsis [Unknown]
  - Acidosis [Unknown]
  - Cardiac disorder [Unknown]
  - Blood pressure increased [Fatal]
  - Haematocrit decreased [Fatal]
  - Platelet count decreased [Fatal]
  - Lymphocyte count decreased [Fatal]
  - Product prescribing error [Fatal]
  - Haemoglobin decreased [Fatal]
  - Pathogen resistance [Fatal]

NARRATIVE: CASE EVENT DATE: 20220715
